FAERS Safety Report 6593757-5 (Version None)
Quarter: 2010Q1

REPORT INFORMATION
  Report Type: 
  Country: None (occurrence: None)
  Receive Date: 20100222
  Receipt Date: 20100216
  Transmission Date: 20100710
  Serious: Yes (Death)
  Sender: FDA-Public Use
  Company Number: AR-SANOFI-AVENTIS-2010SA009513

PATIENT
  Age: 73 Year
  Sex: Male

DRUGS (7)
  1. DOCETAXEL [Suspect]
     Indication: PROSTATE CANCER
     Route: 042
     Dates: start: 20091028, end: 20091028
  2. DOCETAXEL [Suspect]
     Route: 042
     Dates: start: 20100126, end: 20100126
  3. BLINDED THERAPY [Suspect]
     Indication: PROSTATE CANCER
     Route: 048
     Dates: start: 20091029, end: 20100128
  4. PREDNISONE [Suspect]
     Indication: PROSTATE CANCER
     Route: 048
     Dates: start: 20091028, end: 20100128
  5. DEXAMETHASONE [Suspect]
     Indication: PREMEDICATION
     Dates: start: 20091028, end: 20100126
  6. ACETYLSALICYLIC ACID [Suspect]
     Dates: start: 20030801, end: 20100128
  7. DICLOFENAC [Suspect]
     Dates: start: 20030201, end: 20100128

REACTIONS (2)
  - CARDIOGENIC SHOCK [None]
  - GASTROINTESTINAL HAEMORRHAGE [None]
